FAERS Safety Report 5643643-X (Version None)
Quarter: 2008Q1

REPORT INFORMATION
  Report Type: 
  Country: None (occurrence: None)
  Receive Date: 20080131
  Receipt Date: 20071002
  Transmission Date: 20080703
  Serious: Yes (Hospitalization)
  Sender: FDA-Public Use
  Company Number: 163-21880-07100167

PATIENT
  Age: 75 Year
  Sex: Male
  Weight: 79.8331 kg

DRUGS (5)
  1. REVLIMID [Suspect]
     Indication: MULTIPLE MYELOMA
     Dosage: 25 MG, DAILY X 21DAYS, ORAL
     Route: 048
     Dates: start: 20070519
  2. COUMADIN [Concomitant]
  3. SIMVASTATIN [Concomitant]
  4. PROGRAF [Concomitant]
  5. PREDNISONE TAB [Concomitant]

REACTIONS (1)
  - DEEP VEIN THROMBOSIS [None]
